FAERS Safety Report 7471160-3 (Version None)
Quarter: 2011Q2

REPORT INFORMATION
  Report Type: 
  Country: None (occurrence: None)
  Receive Date: 20110510
  Receipt Date: 20110503
  Transmission Date: 20111010
  Serious: Yes (Death)
  Sender: FDA-Public Use
  Company Number: FR-PFIZER INC-2010019392

PATIENT
  Age: 59 Year
  Sex: Female

DRUGS (9)
  1. CORDARONE [Suspect]
     Dosage: 200 MG, 1X/DAY
     Route: 048
     Dates: end: 20100118
  2. ATARAX [Suspect]
     Dosage: 25 MG, 1X/DAY
     Route: 048
     Dates: start: 20100111, end: 20100115
  3. TRAMADOL HCL [Suspect]
     Dosage: 50 MG, 2X/DAY
     Route: 048
     Dates: start: 20100111, end: 20100116
  4. ATORVASTATIN CALCIUM [Suspect]
     Dosage: 20 MG, 1X/DAY
     Route: 048
     Dates: end: 20100118
  5. VINORELBINE [Suspect]
     Dosage: 1 DF, MONTHLY
     Route: 042
     Dates: start: 20091124, end: 20091124
  6. FLECAINIDE ACETATE [Suspect]
     Dosage: 200 MG, 1X/DAY
     Route: 048
     Dates: end: 20100118
  7. LASIX [Suspect]
     Dosage: 40 MG, 1X/DAY
     Route: 048
     Dates: end: 20100118
  8. VINORELBINE [Suspect]
     Dosage: 1 DF, MONTHLY
     Route: 042
     Dates: start: 20091221, end: 20091221
  9. LEVOTHYROXINE SODIUM [Suspect]
     Dosage: 25 UG, 1X/DAY
     Route: 048
     Dates: end: 20100118

REACTIONS (1)
  - INTESTINAL OBSTRUCTION [None]
